FAERS Safety Report 6953443-6 (Version None)
Quarter: 2010Q3

REPORT INFORMATION
  Report Type: 
  Country: None (occurrence: None)
  Receive Date: 20100829
  Receipt Date: 20100617
  Transmission Date: 20110219
  Serious: No
  Sender: FDA-Public Use
  Company Number: US-ABBOTT-10P-163-0652036-00

PATIENT
  Sex: Male
  Weight: 111.23 kg

DRUGS (4)
  1. NIASPAN [Suspect]
     Indication: HIGH DENSITY LIPOPROTEIN DECREASED
     Dosage: 2-750 MG TABS AT BEDTIME
     Dates: start: 20091001
  2. LISINOPRIL [Concomitant]
     Indication: PRODUCT USED FOR UNKNOWN INDICATION
  3. FISH OIL [Concomitant]
     Indication: PRODUCT USED FOR UNKNOWN INDICATION
  4. ASPIRIN [Concomitant]
     Indication: PRODUCT USED FOR UNKNOWN INDICATION
     Dosage: TAKE WITH NIASPAN COATED

REACTIONS (4)
  - FEELING ABNORMAL [None]
  - HOT FLUSH [None]
  - PARAESTHESIA [None]
  - SKIN BURNING SENSATION [None]
